FAERS Safety Report 4596054-2 (Version None)
Quarter: 2005Q1

REPORT INFORMATION
  Report Type: 
  Country: None (occurrence: None)
  Receive Date: 20050225
  Receipt Date: 20050218
  Transmission Date: 20050727
  Serious: Yes (Life-Threatening)
  Sender: FDA-Public Use
  Company Number: SEWYE154602JUN03

PATIENT
  Age: 33 Year
  Sex: Female

DRUGS (2)
  1. LEVONORGESTREL AND ETHINYL ESTRADIOL [Suspect]
     Indication: CONTRACEPTION
     Dosage: 1 TABLET 1X PER 1 DAY ORAL
     Route: 048
     Dates: start: 20010501, end: 20030301
  2. ZOMIG [Suspect]
     Indication: MIGRAINE
     Dosage: 5 MG WHEN NEEDED, PROBABLY INCREASED DOSAGE DURING 2 DAYS BEFORE AE ONSET ORAL
     Route: 048

REACTIONS (4)
  - CEREBRAL ARTERY OCCLUSION [None]
  - CEREBRAL HAEMATOMA [None]
  - CEREBRAL HAEMORRHAGE [None]
  - CEREBRAL VENOUS THROMBOSIS [None]
